FAERS Safety Report 4918447-3 (Version None)
Quarter: 2006Q1

REPORT INFORMATION
  Report Type: 
  Country: None (occurrence: None)
  Receive Date: 20060214
  Receipt Date: 20060203
  Transmission Date: 20060701
  Serious: Yes (Hospitalization)
  Sender: FDA-Public Use
  Company Number: DE-2006-002229

PATIENT
  Age: 28 Year
  Sex: Female

DRUGS (1)
  1. MIRENA [Suspect]
     Dosage: 20 UG/DAY, CONT, INTRA-UTERINE
     Dates: start: 20020701, end: 20060109

REACTIONS (2)
  - COMPLICATION OF DEVICE REMOVAL [None]
  - MECHANICAL COMPLICATION OF IMPLANT [None]
